FAERS Safety Report 21902755 (Version 1)
Quarter: 2023Q1

REPORT INFORMATION
  Report Type: Spontaneous
  Country: CN (occurrence: CN)
  Receive Date: 20230124
  Receipt Date: 20230124
  Transmission Date: 20230418
  Serious: Yes (Other)
  Sender: FDA-Public Use
  Company Number: CN-002147023-NVSC2023CN011791

PATIENT
  Age: 45 Year
  Sex: Female

DRUGS (1)
  1. EVEROLIMUS [Suspect]
     Active Substance: EVEROLIMUS
     Indication: Perivascular epithelioid cell tumour
     Dosage: 10 MG, QD
     Route: 065

REACTIONS (6)
  - Perivascular epithelioid cell tumour [Unknown]
  - Malignant neoplasm progression [Unknown]
  - Metastases to abdominal cavity [Unknown]
  - Metastases to pelvis [Unknown]
  - Fatigue [Unknown]
  - Product use in unapproved indication [Unknown]
